FAERS Safety Report 18991891 (Version 1)
Quarter: 2021Q1

REPORT INFORMATION
  Report Type: Spontaneous
  Country: CN (occurrence: CN)
  Receive Date: 20210310
  Receipt Date: 20210310
  Transmission Date: 20210420
  Serious: Yes (Other)
  Sender: FDA-Public Use
  Company Number: CN-PFIZER INC-2021218520

PATIENT
  Age: 83 Year
  Sex: Male
  Weight: 70 kg

DRUGS (2)
  1. TYGACIL [Suspect]
     Active Substance: TIGECYCLINE
     Indication: ANTI-INFECTIVE THERAPY
  2. TYGACIL [Suspect]
     Active Substance: TIGECYCLINE
     Indication: APHASIA
     Dosage: 50 MG, 2X/DAY
     Route: 041
     Dates: start: 20210120, end: 20210131

REACTIONS (9)
  - Activated partial thromboplastin time prolonged [Recovering/Resolving]
  - Thrombin time prolonged [Recovering/Resolving]
  - Fibrin D dimer increased [Recovering/Resolving]
  - Prothrombin level decreased [Recovering/Resolving]
  - Fibrin degradation products increased [Recovering/Resolving]
  - Myelosuppression [Recovering/Resolving]
  - Prothrombin time prolonged [Recovering/Resolving]
  - International normalised ratio increased [Recovering/Resolving]
  - Blood fibrinogen decreased [Recovering/Resolving]

NARRATIVE: CASE EVENT DATE: 20210131
